FAERS Safety Report 24979295 (Version 1)
Quarter: 2025Q1

REPORT INFORMATION
  Report Type: Spontaneous
  Country: CA (occurrence: CA)
  Receive Date: 20250218
  Receipt Date: 20250218
  Transmission Date: 20250408
  Serious: Yes (Death, Life-Threatening, Hospitalization, Disabling, Congenital Anomaly, Other)
  Sender: NORDIC PHARMA
  Company Number: CA-NORDICGR-058858

PATIENT
  Age: 44 Year
  Sex: Female

DRUGS (178)
  1. METHOTREXATE [Suspect]
     Active Substance: METHOTREXATE
     Indication: Rheumatoid arthritis
     Route: 058
  2. METHOTREXATE [Suspect]
     Active Substance: METHOTREXATE
     Indication: Rheumatoid arthritis
     Route: 058
  3. METHOTREXATE [Suspect]
     Active Substance: METHOTREXATE
     Indication: Rheumatoid arthritis
     Route: 065
  4. METHOTREXATE [Suspect]
     Active Substance: METHOTREXATE
     Indication: Rheumatoid arthritis
     Route: 065
  5. METHOTREXATE [Suspect]
     Active Substance: METHOTREXATE
     Indication: Rheumatoid arthritis
     Route: 065
  6. PSEUDOEPHEDRINE HYDROCHLORIDE [Concomitant]
     Active Substance: PSEUDOEPHEDRINE HYDROCHLORIDE
     Indication: Rheumatoid arthritis
     Route: 065
  7. PSEUDOEPHEDRINE HYDROCHLORIDE [Concomitant]
     Active Substance: PSEUDOEPHEDRINE HYDROCHLORIDE
     Indication: Rheumatoid arthritis
     Route: 065
  8. PREDNISONE [Concomitant]
     Active Substance: PREDNISONE
     Indication: Rheumatoid arthritis
     Route: 048
  9. ARAVA [Concomitant]
     Active Substance: LEFLUNOMIDE
     Indication: Rheumatoid arthritis
     Route: 048
  10. CHOLECALCIFEROL [Concomitant]
     Active Substance: CHOLECALCIFEROL
     Indication: Product used for unknown indication
     Route: 065
  11. OXYCODONE TEREPHTHALATE [Concomitant]
     Active Substance: OXYCODONE TEREPHTHALATE
     Indication: Product used for unknown indication
     Route: 016
  12. REMICADE [Concomitant]
     Active Substance: INFLIXIMAB
     Indication: Rheumatoid arthritis
     Route: 065
  13. REMICADE [Concomitant]
     Active Substance: INFLIXIMAB
     Indication: Rheumatoid arthritis
     Route: 042
  14. ENBREL [Concomitant]
     Active Substance: ETANERCEPT
     Indication: Rheumatoid arthritis
     Route: 058
  15. ENBREL [Concomitant]
     Active Substance: ETANERCEPT
     Indication: Rheumatoid arthritis
     Route: 058
  16. ENBREL [Concomitant]
     Active Substance: ETANERCEPT
     Indication: Rheumatoid arthritis
     Route: 058
  17. ENBREL [Concomitant]
     Active Substance: ETANERCEPT
     Indication: Rheumatoid arthritis
     Route: 065
  18. ADALIMUMAB [Concomitant]
     Active Substance: ADALIMUMAB
     Indication: Psoriatic arthropathy
     Route: 048
  19. ADALIMUMAB [Concomitant]
     Active Substance: ADALIMUMAB
     Indication: Psoriatic arthropathy
     Route: 058
  20. PREGABALIN [Concomitant]
     Active Substance: PREGABALIN
     Indication: Product used for unknown indication
     Route: 065
  21. EMEND [Concomitant]
     Active Substance: APREPITANT
     Indication: Product used for unknown indication
     Route: 065
  22. CHLORAPREP [Concomitant]
     Active Substance: CHLORHEXIDINE GLUCONATE\ISOPROPYL ALCOHOL
     Indication: Product used for unknown indication
     Route: 065
  23. MYCOPHENOLATE MOFETIL [Concomitant]
     Active Substance: MYCOPHENOLATE MOFETIL
     Indication: Product used for unknown indication
     Route: 065
  24. XELJANZ [Concomitant]
     Active Substance: TOFACITINIB CITRATE
     Indication: Rheumatoid arthritis
     Route: 065
  25. XELJANZ [Concomitant]
     Active Substance: TOFACITINIB CITRATE
     Indication: Rheumatoid arthritis
     Route: 048
  26. XELJANZ [Concomitant]
     Active Substance: TOFACITINIB CITRATE
     Indication: Rheumatoid arthritis
     Route: 048
  27. CALCIUM CARBONATE [Concomitant]
     Active Substance: CALCIUM CARBONATE
     Indication: Product used for unknown indication
     Route: 065
  28. CORTISONE ACETATE [Concomitant]
     Active Substance: CORTISONE ACETATE
     Indication: Rheumatoid arthritis
     Route: 065
  29. CORTISONE ACETATE [Concomitant]
     Active Substance: CORTISONE ACETATE
     Indication: Rheumatoid arthritis
     Route: 048
  30. FLUMETHASONE PIVALATE [Concomitant]
     Active Substance: FLUMETHASONE PIVALATE
     Indication: Rheumatoid arthritis
     Route: 058
  31. SIMPONI [Concomitant]
     Active Substance: GOLIMUMAB
     Indication: Rheumatoid arthritis
     Route: 052
  32. SIMPONI [Concomitant]
     Active Substance: GOLIMUMAB
     Indication: Rheumatoid arthritis
     Route: 042
  33. SIMPONI [Concomitant]
     Active Substance: GOLIMUMAB
     Indication: Rheumatoid arthritis
     Route: 058
  34. VITAMIN C [Concomitant]
     Active Substance: ASCORBIC ACID
     Indication: Product used for unknown indication
     Route: 016
  35. ORENCIA [Concomitant]
     Active Substance: ABATACEPT
     Indication: Rheumatoid arthritis
     Route: 058
  36. ORENCIA [Concomitant]
     Active Substance: ABATACEPT
     Indication: Rheumatoid arthritis
     Route: 042
  37. ORENCIA [Concomitant]
     Active Substance: ABATACEPT
     Indication: Rheumatoid arthritis
     Route: 058
  38. CETIRIZINE HYDROCHLORIDE\PSEUDOEPHEDRINE HYDROCHLORIDE [Concomitant]
     Active Substance: CETIRIZINE HYDROCHLORIDE\PSEUDOEPHEDRINE HYDROCHLORIDE
     Indication: Rheumatoid arthritis
     Route: 065
  39. CETIRIZINE HYDROCHLORIDE\PSEUDOEPHEDRINE HYDROCHLORIDE [Concomitant]
     Active Substance: CETIRIZINE HYDROCHLORIDE\PSEUDOEPHEDRINE HYDROCHLORIDE
     Indication: Rheumatoid arthritis
     Route: 048
  40. FOSAMAX [Concomitant]
     Active Substance: ALENDRONATE SODIUM
     Indication: Rheumatoid arthritis
     Route: 048
  41. FOSAMAX [Concomitant]
     Active Substance: ALENDRONATE SODIUM
     Indication: Rheumatoid arthritis
     Route: 065
  42. FOSAMAX [Concomitant]
     Active Substance: ALENDRONATE SODIUM
     Indication: Rheumatoid arthritis
     Route: 048
  43. ISOPROPYL ALCOHOL [Concomitant]
     Active Substance: ISOPROPYL ALCOHOL
     Indication: Product used for unknown indication
     Route: 061
  44. ERELZI [Concomitant]
     Active Substance: ETANERCEPT-SZZS
     Indication: Rheumatoid arthritis
     Route: 058
  45. ERELZI [Concomitant]
     Active Substance: ETANERCEPT-SZZS
     Indication: Rheumatoid arthritis
     Route: 058
  46. NEOMYCIN [Concomitant]
     Active Substance: NEOMYCIN
     Indication: Product used for unknown indication
     Route: 065
  47. Naproxen sodiium [Concomitant]
     Indication: Rheumatoid arthritis
     Route: 065
  48. Naproxen sodiium [Concomitant]
     Indication: Rheumatoid arthritis
     Route: 065
  49. BORAGE OIL [Concomitant]
     Active Substance: BORAGE OIL
     Indication: Product used for unknown indication
     Route: 065
  50. CORTISONE [Concomitant]
     Active Substance: CORTISONE
     Indication: Rheumatoid arthritis
     Route: 048
  51. CORTISONE [Concomitant]
     Active Substance: CORTISONE
     Indication: Rheumatoid arthritis
     Route: 065
  52. TRIAMCINOLONE ACETONIDE [Concomitant]
     Active Substance: TRIAMCINOLONE ACETONIDE
     Indication: Rheumatoid arthritis
     Route: 014
  53. ACETAMINOPHEN [Concomitant]
     Active Substance: ACETAMINOPHEN
     Indication: Rheumatoid arthritis
     Route: 065
  54. INFLIXIMAB [Concomitant]
     Active Substance: INFLIXIMAB
     Indication: Rheumatoid arthritis
     Route: 042
  55. INFLIXIMAB [Concomitant]
     Active Substance: INFLIXIMAB
     Indication: Rheumatoid arthritis
     Route: 065
  56. INFLIXIMAB [Concomitant]
     Active Substance: INFLIXIMAB
     Indication: Rheumatoid arthritis
     Route: 042
  57. INFLIXIMAB [Concomitant]
     Active Substance: INFLIXIMAB
     Indication: Rheumatoid arthritis
     Route: 065
  58. VOLTAREN [Concomitant]
     Active Substance: DICLOFENAC SODIUM
     Indication: Product used for unknown indication
     Route: 065
  59. STELARA [Concomitant]
     Active Substance: USTEKINUMAB
     Indication: Psoriatic arthropathy
     Route: 042
  60. STELARA [Concomitant]
     Active Substance: USTEKINUMAB
     Indication: Psoriatic arthropathy
     Route: 058
  61. CHLORHEXIDINE [Concomitant]
     Active Substance: CHLORHEXIDINE
     Indication: Product used for unknown indication
     Route: 048
  62. CHLORHEXIDINE [Concomitant]
     Active Substance: CHLORHEXIDINE
     Indication: Product used for unknown indication
     Route: 002
  63. CHLORHEXIDINE [Concomitant]
     Active Substance: CHLORHEXIDINE
     Indication: Product used for unknown indication
     Route: 065
  64. VITAMIN B12 [Concomitant]
     Active Substance: CYANOCOBALAMIN
     Indication: Product used for unknown indication
     Route: 065
  65. DICLOFENAC POTASSIUM [Concomitant]
     Active Substance: DICLOFENAC POTASSIUM
     Indication: Product used for unknown indication
     Route: 048
  66. HYDROCORTISONE SODIUM SUCCINATE [Concomitant]
     Active Substance: HYDROCORTISONE SODIUM SUCCINATE
     Indication: Rheumatoid arthritis
     Route: 048
  67. HYDROCORTISONE [Concomitant]
     Active Substance: HYDROCORTISONE
     Indication: Rheumatoid arthritis
     Route: 058
  68. FOLIC ACID [Concomitant]
     Active Substance: FOLIC ACID
     Indication: Rheumatoid arthritis
     Route: 065
  69. FOLIC ACID [Concomitant]
     Active Substance: FOLIC ACID
     Indication: Rheumatoid arthritis
     Route: 048
  70. FOLIC ACID [Concomitant]
     Active Substance: FOLIC ACID
     Indication: Rheumatoid arthritis
     Route: 048
  71. FOLIC ACID [Concomitant]
     Active Substance: FOLIC ACID
     Indication: Rheumatoid arthritis
     Route: 048
  72. FOLIC ACID [Concomitant]
     Active Substance: FOLIC ACID
     Indication: Rheumatoid arthritis
     Route: 048
  73. FOLIC ACID [Concomitant]
     Active Substance: FOLIC ACID
     Indication: Rheumatoid arthritis
     Route: 048
  74. FOLIC ACID [Concomitant]
     Active Substance: FOLIC ACID
     Indication: Rheumatoid arthritis
     Route: 048
  75. HYDROCORTISONE PROBUTATE [Concomitant]
     Active Substance: HYDROCORTISONE PROBUTATE
     Indication: Rheumatoid arthritis
     Route: 003
  76. DOXYCYCLINE HYCLATE [Concomitant]
     Active Substance: DOXYCYCLINE HYCLATE
     Indication: Product used for unknown indication
     Route: 065
  77. SULFASALAZINE [Concomitant]
     Active Substance: SULFASALAZINE
     Indication: Rheumatoid arthritis
     Route: 048
  78. SULFASALAZINE [Concomitant]
     Active Substance: SULFASALAZINE
     Indication: Rheumatoid arthritis
     Route: 048
  79. SULFASALAZINE [Concomitant]
     Active Substance: SULFASALAZINE
     Indication: Rheumatoid arthritis
     Route: 048
  80. SULFASALAZINE [Concomitant]
     Active Substance: SULFASALAZINE
     Indication: Rheumatoid arthritis
     Route: 048
  81. PHTHALYLSULFATHIAZOLE [Concomitant]
     Active Substance: PHTHALYLSULFATHIAZOLE
     Indication: Rheumatoid arthritis
     Route: 048
  82. PHTHALYLSULFATHIAZOLE [Concomitant]
     Active Substance: PHTHALYLSULFATHIAZOLE
     Indication: Rheumatoid arthritis
     Route: 065
  83. PHTHALYLSULFATHIAZOLE [Concomitant]
     Active Substance: PHTHALYLSULFATHIAZOLE
     Indication: Rheumatoid arthritis
     Route: 048
  84. PHTHALYLSULFATHIAZOLE [Concomitant]
     Active Substance: PHTHALYLSULFATHIAZOLE
     Indication: Rheumatoid arthritis
     Route: 016
  85. PHTHALYLSULFATHIAZOLE [Concomitant]
     Active Substance: PHTHALYLSULFATHIAZOLE
     Indication: Rheumatoid arthritis
     Route: 048
  86. PHTHALYLSULFATHIAZOLE [Concomitant]
     Active Substance: PHTHALYLSULFATHIAZOLE
     Indication: Rheumatoid arthritis
     Route: 048
  87. PHTHALYLSULFATHIAZOLE [Concomitant]
     Active Substance: PHTHALYLSULFATHIAZOLE
     Indication: Rheumatoid arthritis
     Route: 042
  88. PHTHALYLSULFATHIAZOLE [Concomitant]
     Active Substance: PHTHALYLSULFATHIAZOLE
     Indication: Rheumatoid arthritis
     Route: 048
  89. DESOXIMETASONE [Concomitant]
     Active Substance: DESOXIMETASONE
     Indication: Rheumatoid arthritis
     Route: 048
  90. DESOXIMETASONE [Concomitant]
     Active Substance: DESOXIMETASONE
     Indication: Rheumatoid arthritis
     Route: 048
  91. DESOXIMETASONE [Concomitant]
     Active Substance: DESOXIMETASONE
     Indication: Rheumatoid arthritis
     Route: 003
  92. DESOXIMETASONE [Concomitant]
     Active Substance: DESOXIMETASONE
     Indication: Rheumatoid arthritis
     Route: 065
  93. DESOXIMETASONE [Concomitant]
     Active Substance: DESOXIMETASONE
     Indication: Rheumatoid arthritis
     Route: 003
  94. DESOXIMETASONE [Concomitant]
     Active Substance: DESOXIMETASONE
     Indication: Rheumatoid arthritis
     Route: 058
  95. DESOXIMETASONE [Concomitant]
     Active Substance: DESOXIMETASONE
     Indication: Rheumatoid arthritis
     Route: 065
  96. DESOXIMETASONE [Concomitant]
     Active Substance: DESOXIMETASONE
     Indication: Rheumatoid arthritis
     Route: 065
  97. DESOXIMETASONE [Concomitant]
     Active Substance: DESOXIMETASONE
     Indication: Rheumatoid arthritis
     Route: 058
  98. DESOXIMETASONE [Concomitant]
     Active Substance: DESOXIMETASONE
     Indication: Rheumatoid arthritis
     Route: 048
  99. DESOXIMETASONE [Concomitant]
     Active Substance: DESOXIMETASONE
     Indication: Rheumatoid arthritis
     Route: 048
  100. DESOXIMETASONE [Concomitant]
     Active Substance: DESOXIMETASONE
     Indication: Rheumatoid arthritis
     Route: 048
  101. DESOXIMETASONE [Concomitant]
     Active Substance: DESOXIMETASONE
     Indication: Rheumatoid arthritis
     Route: 048
  102. RITUXIMAB [Concomitant]
     Active Substance: RITUXIMAB
     Indication: Rheumatoid arthritis
     Route: 058
  103. RITUXIMAB [Concomitant]
     Active Substance: RITUXIMAB
     Indication: Rheumatoid arthritis
     Route: 042
  104. PREDNISONE [Concomitant]
     Active Substance: PREDNISONE
     Indication: Rheumatoid arthritis
     Route: 048
  105. PREDNISONE [Concomitant]
     Active Substance: PREDNISONE
     Indication: Rheumatoid arthritis
     Route: 048
  106. PREDNISONE [Concomitant]
     Active Substance: PREDNISONE
     Indication: Rheumatoid arthritis
     Route: 042
  107. PREDNISONE [Concomitant]
     Active Substance: PREDNISONE
     Indication: Rheumatoid arthritis
     Route: 065
  108. PREDNISONE [Concomitant]
     Active Substance: PREDNISONE
     Indication: Rheumatoid arthritis
     Route: 048
  109. PREDNISONE [Concomitant]
     Active Substance: PREDNISONE
     Indication: Rheumatoid arthritis
     Route: 048
  110. OXYCODONE [Concomitant]
     Active Substance: OXYCODONE
     Indication: Product used for unknown indication
     Route: 065
  111. Chlorhexidine gluconate / isopropanol [Concomitant]
     Indication: Product used for unknown indication
     Route: 016
  112. Chlorhexidine gluconate / isopropanol [Concomitant]
     Indication: Product used for unknown indication
     Route: 002
  113. Chlorhexidine gluconate / isopropanol [Concomitant]
     Indication: Product used for unknown indication
     Route: 048
  114. Chlorhexidine gluconate / isopropanol [Concomitant]
     Indication: Product used for unknown indication
     Route: 065
  115. CETIRIZINE [Concomitant]
     Active Substance: CETIRIZINE HYDROCHLORIDE
     Indication: Rheumatoid arthritis
     Route: 048
  116. CETIRIZINE [Concomitant]
     Active Substance: CETIRIZINE HYDROCHLORIDE
     Indication: Rheumatoid arthritis
     Route: 048
  117. ACTEMRA [Concomitant]
     Active Substance: TOCILIZUMAB
     Indication: Rheumatoid arthritis
     Route: 042
  118. ACTEMRA [Concomitant]
     Active Substance: TOCILIZUMAB
     Indication: Rheumatoid arthritis
     Route: 042
  119. ACTEMRA [Concomitant]
     Active Substance: TOCILIZUMAB
     Indication: Rheumatoid arthritis
     Route: 042
  120. ACTEMRA [Concomitant]
     Active Substance: TOCILIZUMAB
     Indication: Rheumatoid arthritis
     Route: 042
  121. ACTEMRA [Concomitant]
     Active Substance: TOCILIZUMAB
     Indication: Rheumatoid arthritis
     Route: 042
  122. ACTEMRA [Concomitant]
     Active Substance: TOCILIZUMAB
     Indication: Rheumatoid arthritis
     Route: 058
  123. ACTEMRA [Concomitant]
     Active Substance: TOCILIZUMAB
     Indication: Rheumatoid arthritis
     Route: 042
  124. ACTEMRA [Concomitant]
     Active Substance: TOCILIZUMAB
     Indication: Rheumatoid arthritis
     Route: 042
  125. PREDNISONE [Concomitant]
     Active Substance: PREDNISONE
     Indication: Rheumatoid arthritis
     Route: 048
  126. PREDNISONE [Concomitant]
     Active Substance: PREDNISONE
     Indication: Rheumatoid arthritis
     Route: 065
  127. HUMIRA [Concomitant]
     Active Substance: ADALIMUMAB
     Indication: Rheumatoid arthritis
     Route: 058
  128. HUMIRA [Concomitant]
     Active Substance: ADALIMUMAB
     Indication: Rheumatoid arthritis
     Route: 058
  129. HUMIRA [Concomitant]
     Active Substance: ADALIMUMAB
     Indication: Rheumatoid arthritis
     Route: 058
  130. HYDROXYCHLOROQUINE SULFATE [Concomitant]
     Active Substance: HYDROXYCHLOROQUINE SULFATE
     Indication: Systemic lupus erythematosus
     Route: 048
  131. HYDROXYCHLOROQUINE SULFATE [Concomitant]
     Active Substance: HYDROXYCHLOROQUINE SULFATE
     Indication: Systemic lupus erythematosus
     Route: 058
  132. HYDROXYCHLOROQUINE SULFATE [Concomitant]
     Active Substance: HYDROXYCHLOROQUINE SULFATE
     Indication: Systemic lupus erythematosus
     Route: 048
  133. HYDROXYCHLOROQUINE SULFATE [Concomitant]
     Active Substance: HYDROXYCHLOROQUINE SULFATE
     Indication: Systemic lupus erythematosus
     Route: 058
  134. HYDROXYCHLOROQUINE SULFATE [Concomitant]
     Active Substance: HYDROXYCHLOROQUINE SULFATE
     Indication: Systemic lupus erythematosus
     Route: 048
  135. CIMZIA [Concomitant]
     Active Substance: CERTOLIZUMAB PEGOL
     Indication: Rheumatoid arthritis
     Route: 065
  136. CIMZIA [Concomitant]
     Active Substance: CERTOLIZUMAB PEGOL
     Indication: Rheumatoid arthritis
     Route: 058
  137. CIMZIA [Concomitant]
     Active Substance: CERTOLIZUMAB PEGOL
     Indication: Rheumatoid arthritis
     Route: 058
  138. CIMZIA [Concomitant]
     Active Substance: CERTOLIZUMAB PEGOL
     Indication: Rheumatoid arthritis
     Route: 058
  139. CIMZIA [Concomitant]
     Active Substance: CERTOLIZUMAB PEGOL
     Indication: Rheumatoid arthritis
     Route: 058
  140. ALENDRONATE SODIUM [Concomitant]
     Active Substance: ALENDRONATE SODIUM
     Indication: Rheumatoid arthritis
     Route: 048
  141. SULFASALAZINE [Concomitant]
     Active Substance: SULFASALAZINE
     Indication: Rheumatoid arthritis
     Route: 048
  142. SULFASALAZINE [Concomitant]
     Active Substance: SULFASALAZINE
     Indication: Rheumatoid arthritis
     Route: 065
  143. SULFASALAZINE [Concomitant]
     Active Substance: SULFASALAZINE
     Indication: Rheumatoid arthritis
     Route: 048
  144. SULFASALAZINE [Concomitant]
     Active Substance: SULFASALAZINE
     Indication: Rheumatoid arthritis
     Route: 065
  145. SULFASALAZINE [Concomitant]
     Active Substance: SULFASALAZINE
     Indication: Rheumatoid arthritis
     Route: 048
  146. SULFASALAZINE [Concomitant]
     Active Substance: SULFASALAZINE
     Indication: Rheumatoid arthritis
     Route: 048
  147. SULFASALAZINE [Concomitant]
     Active Substance: SULFASALAZINE
     Indication: Rheumatoid arthritis
     Route: 048
  148. SULFASALAZINE [Concomitant]
     Active Substance: SULFASALAZINE
     Indication: Rheumatoid arthritis
     Route: 048
  149. SULFASALAZINE [Concomitant]
     Active Substance: SULFASALAZINE
     Indication: Rheumatoid arthritis
     Route: 048
  150. Sulfamehoxazole [Concomitant]
     Indication: Product used for unknown indication
     Route: 065
  151. LEFLUNOMIDE [Concomitant]
     Active Substance: LEFLUNOMIDE
     Indication: Rheumatoid arthritis
     Route: 048
  152. TRAMADOL HYDROCHLORIDE [Concomitant]
     Active Substance: TRAMADOL HYDROCHLORIDE
     Indication: Product used for unknown indication
     Route: 065
  153. LYRICA [Concomitant]
     Active Substance: PREGABALIN
     Indication: Product used for unknown indication
     Route: 065
  154. OTEZLA [Concomitant]
     Active Substance: APREMILAST
     Indication: Rheumatoid arthritis
     Route: 048
  155. OTEZLA [Concomitant]
     Active Substance: APREMILAST
     Indication: Rheumatoid arthritis
     Route: 065
  156. OTEZLA [Concomitant]
     Active Substance: APREMILAST
     Indication: Rheumatoid arthritis
     Route: 042
  157. CELEBREX [Concomitant]
     Active Substance: CELECOXIB
     Indication: Product used for unknown indication
     Route: 048
  158. Gramicidin / polymyxin B [Concomitant]
     Indication: Product used for unknown indication
     Route: 065
  159. CELECOXIB [Concomitant]
     Active Substance: CELECOXIB
     Indication: Product used for unknown indication
     Route: 065
  160. COSENTYX [Concomitant]
     Active Substance: SECUKINUMAB
     Indication: Rheumatoid arthritis
     Route: 005
  161. SULFAMETHOXAZOLE\TRIMETHOPRIM [Concomitant]
     Active Substance: SULFAMETHOXAZOLE\TRIMETHOPRIM
     Indication: Product used for unknown indication
     Route: 065
  162. DICLOFENAC SODIUM [Concomitant]
     Active Substance: DICLOFENAC SODIUM
     Indication: Product used for unknown indication
     Route: 058
  163. DICLOFENAC SODIUM [Concomitant]
     Active Substance: DICLOFENAC SODIUM
     Indication: Product used for unknown indication
     Route: 048
  164. DICLOFENAC SODIUM [Concomitant]
     Active Substance: DICLOFENAC SODIUM
     Indication: Product used for unknown indication
     Route: 065
  165. DICLOFENAC SODIUM [Concomitant]
     Active Substance: DICLOFENAC SODIUM
     Indication: Product used for unknown indication
     Route: 058
  166. METHOTREXATE [Concomitant]
     Active Substance: METHOTREXATE
     Indication: Rheumatoid arthritis
     Route: 048
  167. METHOTREXATE [Concomitant]
     Active Substance: METHOTREXATE
     Indication: Rheumatoid arthritis
     Route: 048
  168. METHOTREXATE [Concomitant]
     Active Substance: METHOTREXATE
     Indication: Rheumatoid arthritis
     Route: 048
  169. METHOTREXATE [Concomitant]
     Active Substance: METHOTREXATE
     Indication: Rheumatoid arthritis
     Route: 048
  170. METHOTREXATE [Concomitant]
     Active Substance: METHOTREXATE
     Indication: Rheumatoid arthritis
     Route: 048
  171. METHOTREXATE [Concomitant]
     Active Substance: METHOTREXATE
     Indication: Rheumatoid arthritis
     Route: 048
  172. METHOTREXATE [Concomitant]
     Active Substance: METHOTREXATE
     Indication: Rheumatoid arthritis
     Route: 048
  173. METHOTREXATE [Concomitant]
     Active Substance: METHOTREXATE
     Indication: Rheumatoid arthritis
     Route: 058
  174. METHOTREXATE [Concomitant]
     Active Substance: METHOTREXATE
     Indication: Rheumatoid arthritis
     Route: 058
  175. METHOTREXATE [Concomitant]
     Active Substance: METHOTREXATE
     Indication: Rheumatoid arthritis
     Route: 013
  176. METHOTREXATE [Concomitant]
     Active Substance: METHOTREXATE
     Indication: Rheumatoid arthritis
     Route: 065
  177. METHOTREXATE [Concomitant]
     Active Substance: METHOTREXATE
     Indication: Rheumatoid arthritis
     Route: 048
  178. CALCIUM GLUBIONATE [Concomitant]
     Active Substance: CALCIUM GLUBIONATE
     Indication: Product used for unknown indication

REACTIONS (52)
  - C-reactive protein abnormal [Fatal]
  - Sleep disorder [Fatal]
  - Mobility decreased [Fatal]
  - Rheumatoid arthritis [Fatal]
  - Hepatic enzyme increased [Fatal]
  - Facet joint syndrome [Fatal]
  - Hypoaesthesia [Fatal]
  - Lip dry [Fatal]
  - Synovitis [Fatal]
  - Weight increased [Fatal]
  - Type 2 diabetes mellitus [Fatal]
  - Injury [Fatal]
  - Joint range of motion decreased [Fatal]
  - Inflammation [Fatal]
  - Rash [Fatal]
  - Infection [Fatal]
  - Systemic lupus erythematosus [Fatal]
  - Irritable bowel syndrome [Fatal]
  - Liver disorder [Fatal]
  - Insomnia [Fatal]
  - Swollen joint count increased [Fatal]
  - Folliculitis [Fatal]
  - Swelling [Fatal]
  - Impaired healing [Fatal]
  - Helicobacter infection [Fatal]
  - Urticaria [Fatal]
  - Sinusitis [Fatal]
  - Malaise [Fatal]
  - Road traffic accident [Fatal]
  - Pruritus [Fatal]
  - Wound [Fatal]
  - Dry mouth [Fatal]
  - Rheumatic fever [Fatal]
  - Sciatica [Fatal]
  - Fibromyalgia [Fatal]
  - Hypersensitivity [Fatal]
  - Sleep disorder due to general medical condition, insomnia type [Fatal]
  - Vomiting [Fatal]
  - Pyrexia [Fatal]
  - Hypertension [Fatal]
  - Duodenal ulcer perforation [Fatal]
  - General physical health deterioration [Fatal]
  - Infusion related reaction [Fatal]
  - Rheumatoid factor positive [Fatal]
  - Wheezing [Fatal]
  - Glossodynia [Fatal]
  - Joint swelling [Fatal]
  - Fatigue [Fatal]
  - Psoriatic arthropathy [Fatal]
  - Stomatitis [Fatal]
  - Hand deformity [Fatal]
  - Ill-defined disorder [Fatal]
